FAERS Safety Report 8397908-1 (Version None)
Quarter: 2012Q2

REPORT INFORMATION
  Report Type: 
  Country: None (occurrence: None)
  Receive Date: 20120531
  Receipt Date: 20120525
  Transmission Date: 20120825
  Serious: No
  Sender: FDA-Public Use
  Company Number: PHHY2012BR036188

PATIENT
  Sex: Female

DRUGS (2)
  1. FORMOTEROL FUMARATE [Suspect]
     Indication: CHRONIC OBSTRUCTIVE PULMONARY DISEASE
     Dosage: IT ONCE DAILY (NIGHT)
  2. FORMOTEROL FUMARATE [Suspect]
     Dosage: TOOK THE MEDICATION TWICE DAILY (MORNING AND NIGHT AND OTHER TIMES SHE TOOK IT ONCE DAILY (NIGHT).

REACTIONS (1)
  - DYSPNOEA [None]
